FAERS Safety Report 5734394-1 (Version None)
Quarter: 2008Q2

REPORT INFORMATION
  Report Type: 
  Country: None (occurrence: None)
  Receive Date: 20080508
  Receipt Date: 20080501
  Transmission Date: 20081010
  Serious: Yes (Other)
  Sender: FDA-Public Use
  Company Number: 2008011479

PATIENT
  Age: 28 Year
  Sex: Female
  Weight: 61.2 kg

DRUGS (1)
  1. ZYRTEC [Suspect]
     Indication: RHINORRHOEA
     Dosage: 1 TABLET ONCE, ORAL
     Route: 048
     Dates: start: 20080426, end: 20080426

REACTIONS (3)
  - NO THERAPEUTIC RESPONSE [None]
  - PRURITUS [None]
  - URTICARIA [None]
